FAERS Safety Report 23857888 (Version 1)
Quarter: 2024Q2

REPORT INFORMATION
  Report Type: Spontaneous
  Country: US (occurrence: US)
  Receive Date: 20240515
  Receipt Date: 20240515
  Transmission Date: 20240716
  Serious: Yes (Hospitalization, Other)
  Sender: FDA-Public Use
  Company Number: US-MYLANLABS-2024M1043298

PATIENT
  Age: 77 Year
  Sex: Female

DRUGS (32)
  1. METHOTREXATE [Suspect]
     Active Substance: METHOTREXATE
     Indication: Rheumatoid arthritis
     Dosage: UNK
     Route: 065
  2. PREDNISONE [Suspect]
     Active Substance: PREDNISONE
     Indication: Rheumatoid arthritis
     Dosage: UNK
     Route: 065
  3. RIFAMPIN [Suspect]
     Active Substance: RIFAMPIN
     Indication: Disseminated mycobacterium avium complex infection
     Dosage: UNK, FOR 21 MONTHS
     Route: 065
  4. RIFAMPIN [Suspect]
     Active Substance: RIFAMPIN
     Indication: Device related infection
  5. RIFAMPIN [Suspect]
     Active Substance: RIFAMPIN
     Indication: Arthritis infective
  6. RIFAMPIN [Suspect]
     Active Substance: RIFAMPIN
     Indication: Osteomyelitis
  7. RIFAMPIN [Suspect]
     Active Substance: RIFAMPIN
     Indication: Bronchiectasis
  8. RIFAMPIN [Suspect]
     Active Substance: RIFAMPIN
     Indication: Pulmonary mass
  9. CLARITHROMYCIN [Suspect]
     Active Substance: CLARITHROMYCIN
     Indication: Disseminated mycobacterium avium complex infection
     Dosage: UNK, FOR 2 WEEKS
     Route: 065
  10. CLARITHROMYCIN [Suspect]
     Active Substance: CLARITHROMYCIN
     Indication: Device related infection
  11. CLARITHROMYCIN [Suspect]
     Active Substance: CLARITHROMYCIN
     Indication: Arthritis infective
  12. CLARITHROMYCIN [Suspect]
     Active Substance: CLARITHROMYCIN
     Indication: Osteomyelitis
  13. CLARITHROMYCIN [Suspect]
     Active Substance: CLARITHROMYCIN
     Indication: Bronchiectasis
  14. CLARITHROMYCIN [Suspect]
     Active Substance: CLARITHROMYCIN
     Indication: Pulmonary mass
  15. AZITHROMYCIN [Suspect]
     Active Substance: AZITHROMYCIN
     Indication: Disseminated mycobacterium avium complex infection
     Dosage: UNK, FOR 7 YEARS
     Route: 065
  16. AZITHROMYCIN [Suspect]
     Active Substance: AZITHROMYCIN
     Indication: Device related infection
  17. AZITHROMYCIN [Suspect]
     Active Substance: AZITHROMYCIN
     Indication: Arthritis infective
  18. AZITHROMYCIN [Suspect]
     Active Substance: AZITHROMYCIN
     Indication: Osteomyelitis
  19. AZITHROMYCIN [Suspect]
     Active Substance: AZITHROMYCIN
     Indication: Bronchiectasis
  20. AZITHROMYCIN [Suspect]
     Active Substance: AZITHROMYCIN
     Indication: Pulmonary mass
  21. ETHAMBUTOL [Suspect]
     Active Substance: ETHAMBUTOL HYDROCHLORIDE
     Indication: Disseminated mycobacterium avium complex infection
     Dosage: UNK, FOR 7 YEARS
     Route: 065
  22. ETHAMBUTOL [Suspect]
     Active Substance: ETHAMBUTOL HYDROCHLORIDE
     Indication: Device related infection
  23. ETHAMBUTOL [Suspect]
     Active Substance: ETHAMBUTOL HYDROCHLORIDE
     Indication: Arthritis infective
  24. ETHAMBUTOL [Suspect]
     Active Substance: ETHAMBUTOL HYDROCHLORIDE
     Indication: Osteomyelitis
  25. ETHAMBUTOL [Suspect]
     Active Substance: ETHAMBUTOL HYDROCHLORIDE
     Indication: Bronchiectasis
  26. ETHAMBUTOL [Suspect]
     Active Substance: ETHAMBUTOL HYDROCHLORIDE
     Indication: Pulmonary mass
  27. RIFABUTIN [Suspect]
     Active Substance: RIFABUTIN
     Indication: Disseminated mycobacterium avium complex infection
     Dosage: UNK, FOR 6 YEARS
     Route: 065
  28. RIFABUTIN [Suspect]
     Active Substance: RIFABUTIN
     Indication: Device related infection
  29. RIFABUTIN [Suspect]
     Active Substance: RIFABUTIN
     Indication: Arthritis infective
  30. RIFABUTIN [Suspect]
     Active Substance: RIFABUTIN
     Indication: Osteomyelitis
  31. RIFABUTIN [Suspect]
     Active Substance: RIFABUTIN
     Indication: Bronchiectasis
  32. RIFABUTIN [Suspect]
     Active Substance: RIFABUTIN
     Indication: Pulmonary mass

REACTIONS (8)
  - Device related infection [Recovering/Resolving]
  - Arthritis infective [Recovering/Resolving]
  - Disseminated mycobacterium avium complex infection [Recovering/Resolving]
  - Osteomyelitis [Recovering/Resolving]
  - Bronchiectasis [Recovering/Resolving]
  - Pulmonary mass [Recovering/Resolving]
  - Treatment failure [Unknown]
  - Gastrointestinal disorder [Recovering/Resolving]
